FAERS Safety Report 15478771 (Version 2)
Quarter: 2018Q4

REPORT INFORMATION
  Report Type: Spontaneous
  Country: NO (occurrence: NO)
  Receive Date: 20181009
  Receipt Date: 20181022
  Transmission Date: 20190205
  Serious: Yes (Life-Threatening, Hospitalization)
  Sender: FDA-Public Use
  Company Number: NO-PFIZER INC-2018403111

PATIENT
  Age: 50 Year
  Sex: Female
  Weight: 80 kg

DRUGS (1)
  1. EFEXOR DEPOT [Suspect]
     Active Substance: VENLAFAXINE HYDROCHLORIDE
     Indication: DEPRESSION
     Dosage: 75 MG, 1X/DAY
     Dates: start: 20090715, end: 20170704

REACTIONS (20)
  - Blood cholesterol increased [Unknown]
  - Night sweats [Unknown]
  - Liver function test abnormal [Unknown]
  - Vision blurred [Unknown]
  - Fatigue [Unknown]
  - Insomnia [Recovering/Resolving]
  - Dry eye [Recovering/Resolving]
  - Dry mouth [Recovering/Resolving]
  - Abdominal pain upper [Unknown]
  - Dizziness [Recovering/Resolving]
  - Apathy [Unknown]
  - Confusional state [Unknown]
  - Memory impairment [Unknown]
  - Eye pruritus [Recovering/Resolving]
  - Hypomania [Unknown]
  - Loss of libido [Unknown]
  - Hypertension [Recovering/Resolving]
  - Nervousness [Unknown]
  - Anxiety [Unknown]
  - Weight increased [Unknown]
